FAERS Safety Report 6044532-1 (Version None)
Quarter: 2009Q1

REPORT INFORMATION
  Report Type: 
  Country: None (occurrence: None)
  Receive Date: 20090120
  Receipt Date: 20090114
  Transmission Date: 20090719
  Serious: Yes (Hospitalization)
  Sender: FDA-Public Use
  Company Number: JP-ASTRAZENECA-2008AP05416

PATIENT
  Age: 60 Year
  Sex: Male

DRUGS (8)
  1. DIPRIVAN [Suspect]
     Indication: SEDATION
     Dosage: ADMINISTERED AT 3-20 ML/H.
     Route: 041
     Dates: start: 20080117, end: 20080302
  2. MIDAZOLAM HCL [Suspect]
     Indication: SEDATION
     Dosage: ADMINISTERED AT 0.5-12 MG/HR.
     Route: 041
     Dates: start: 20071230, end: 20080302
  3. STADOL [Suspect]
     Indication: SEDATION
     Dosage: ADMINISTERED AT 0.5-12 MG/HR.
     Route: 041
     Dates: start: 20080102, end: 20080302
  4. VEEN-F [Concomitant]
     Dosage: DOSE UNKNOWN
     Route: 042
  5. ACTIT [Concomitant]
     Dosage: DOSE UNKNOWN
     Route: 042
  6. FULCALIQ 2 [Concomitant]
     Dosage: DOSE UNKNOWN
     Route: 042
  7. GASTER [Concomitant]
     Dosage: DOSE UNKNOWN
     Route: 042
  8. FLUMARIN [Concomitant]
     Dosage: DOSE UNKNOWN
     Route: 042

REACTIONS (1)
  - DRUG WITHDRAWAL SYNDROME [None]
